FAERS Safety Report 16219092 (Version 3)
Quarter: 2019Q3

REPORT INFORMATION
  Report Type: Spontaneous
  Country: US (occurrence: US)
  Receive Date: 20190419
  Receipt Date: 20190718
  Transmission Date: 20191004
  Serious: Yes (Other)
  Sender: FDA-Public Use
  Company Number: US-ASTRAZENECA-2019SE11005

PATIENT
  Age: 57 Year
  Sex: Female
  Weight: 97.5 kg

DRUGS (16)
  1. IRBESARTAN. [Concomitant]
     Active Substance: IRBESARTAN
  2. WARFARIN [Concomitant]
     Active Substance: WARFARIN
  3. CALCITRIOL. [Concomitant]
     Active Substance: CALCITRIOL
  4. CALCITRIOL. [Concomitant]
     Active Substance: CALCITRIOL
  5. ACIPHEX [Suspect]
     Active Substance: RABEPRAZOLE SODIUM
     Indication: GASTROOESOPHAGEAL REFLUX DISEASE
     Route: 065
     Dates: start: 2002, end: 2003
  6. FOLATE [Concomitant]
     Active Substance: FOLATE SODIUM
  7. BIOTIN [Concomitant]
     Active Substance: BIOTIN
     Indication: ALOPECIA
  8. COREG [Concomitant]
     Active Substance: CARVEDILOL
  9. IRBESARTAN. [Concomitant]
     Active Substance: IRBESARTAN
  10. VITAMIN D [Concomitant]
     Active Substance: VITAMIN D NOS
  11. NEXIUM [Suspect]
     Active Substance: ESOMEPRAZOLE MAGNESIUM
     Indication: GASTROOESOPHAGEAL REFLUX DISEASE
     Route: 048
     Dates: start: 2002, end: 2010
  12. SIMVASTATIN. [Concomitant]
     Active Substance: SIMVASTATIN
  13. FAMOTIDINE. [Concomitant]
     Active Substance: FAMOTIDINE
  14. PEPCID [Concomitant]
     Active Substance: FAMOTIDINE
  15. DIOVAN [Concomitant]
     Active Substance: VALSARTAN
  16. CARVEDILOL. [Concomitant]
     Active Substance: CARVEDILOL

REACTIONS (4)
  - Chronic kidney disease [Unknown]
  - Renal failure [Not Recovered/Not Resolved]
  - Renal injury [Unknown]
  - Rebound acid hypersecretion [Unknown]

NARRATIVE: CASE EVENT DATE: 2009
